FAERS Safety Report 5482095-X (Version None)
Quarter: 2007Q4

REPORT INFORMATION
  Report Type: 
  Country: None (occurrence: None)
  Receive Date: 20071011
  Receipt Date: 20071004
  Transmission Date: 20080405
  Serious: Yes (Disabling, Other)
  Sender: FDA-Public Use
  Company Number: PHNU2007DE03336

PATIENT
  Sex: Female
  Weight: 85 kg

DRUGS (1)
  1. EXFORGE [Suspect]
     Indication: HYPERTENSION
     Dosage: 1 DF, QD

REACTIONS (2)
  - OEDEMA PERIPHERAL [None]
  - SYNCOPE [None]
